FAERS Safety Report 21559388 (Version 1)
Quarter: 2022Q4

REPORT INFORMATION
  Report Type: Spontaneous
  Country: FR (occurrence: FR)
  Receive Date: 20221107
  Receipt Date: 20221107
  Transmission Date: 20230112
  Serious: Yes (Other)
  Sender: FDA-Public Use
  Company Number: FR-MYLANLABS-2022M1121602

PATIENT
  Age: 32 Year
  Sex: Female

DRUGS (1)
  1. EFFEXOR [Suspect]
     Active Substance: VENLAFAXINE HYDROCHLORIDE
     Indication: Depression
     Dosage: 75 MILLIGRAM (75 MILLIGRAM, UNK)
     Route: 048

REACTIONS (1)
  - Blood creatine phosphokinase increased [Unknown]
